FAERS Safety Report 7225544-9 (Version None)
Quarter: 2011Q1

REPORT INFORMATION
  Report Type: 
  Country: None (occurrence: None)
  Receive Date: 20110103
  Receipt Date: 20101216
  Transmission Date: 20110831
  Serious: Yes (Other)
  Sender: FDA-Public Use
  Company Number: ACO_21028_2010

PATIENT
  Age: 52 Year
  Sex: Male
  Weight: 102 kg

DRUGS (6)
  1. CLONAZEPAM [Concomitant]
  2. AMPYRA [Suspect]
     Indication: GAIT DISTURBANCE
     Dosage: 10 MG, BID, ORAL
     Route: 048
     Dates: start: 20101101
  3. DOXEPIN HCL [Concomitant]
  4. COPAXONE [Concomitant]
  5. NEXIUM [Concomitant]
  6. OXYCODONE AND ACETAMINOPHEN [Concomitant]

REACTIONS (3)
  - MUSCLE TIGHTNESS [None]
  - FLUSHING [None]
  - DYSPNOEA [None]
